FAERS Safety Report 9605191 (Version 2)
Quarter: 2013Q4

REPORT INFORMATION
  Report Type: Report from Study
  Country: UG (occurrence: UG)
  Receive Date: 20131008
  Receipt Date: 20131015
  Transmission Date: 20140711
  Serious: Yes (Death, Life-Threatening, Hospitalization, Other)
  Sender: FDA-Public Use
  Company Number: UG-009507513-1310UGA003368

PATIENT
  Age: 30 Year
  Sex: Male

DRUGS (8)
  1. RALTEGRAVIR POTASSIUM [Suspect]
     Indication: ANTIRETROVIRAL THERAPY
     Dosage: UNK
     Route: 048
     Dates: start: 20130926, end: 20131005
  2. EFAVIRENZ [Suspect]
     Indication: ANTIRETROVIRAL THERAPY
     Dosage: UNK
     Route: 048
     Dates: start: 20130925, end: 20131003
  3. TRUVADA [Suspect]
     Indication: ANTIRETROVIRAL THERAPY
     Dosage: UNK
     Dates: start: 20130926, end: 20131005
  4. LOPERAMIDE HYDROCHLORIDE [Concomitant]
     Dosage: UNK
     Dates: start: 20130929, end: 20131004
  5. PYRIDOXINE [Concomitant]
  6. SEPTRIN [Concomitant]
  7. VITAMIN B (UNSPECIFIED) [Concomitant]
     Dosage: UNK
     Dates: start: 20130929, end: 20131005
  8. NEVIRAPINE [Concomitant]
     Dosage: UNK
     Dates: start: 20131003, end: 20131005

REACTIONS (5)
  - Cryptococcosis [Fatal]
  - Dehydration [Fatal]
  - Pyrexia [Not Recovered/Not Resolved]
  - Dehydration [Not Recovered/Not Resolved]
  - Sepsis [Not Recovered/Not Resolved]
